FAERS Safety Report 6748687-2 (Version None)
Quarter: 2010Q2

REPORT INFORMATION
  Report Type: 
  Country: None (occurrence: None)
  Receive Date: 20100601
  Receipt Date: 20100518
  Transmission Date: 20101027
  Serious: Yes (Other)
  Sender: FDA-Public Use
  Company Number: CN-RANBAXY-2010RR-34005

PATIENT
  Age: 40 Year
  Sex: Female

DRUGS (5)
  1. AMLODIPINE [Suspect]
     Indication: HYPERTENSION
     Dosage: 2.5 MG, UNK
     Route: 048
     Dates: start: 20080401, end: 20081201
  2. AMLODIPINE [Concomitant]
     Dosage: 2.5 MG, BID
  3. MAGNESIUM SULFATE [Suspect]
     Indication: PRE-ECLAMPSIA
     Dosage: 2 G, UNK
     Route: 042
  4. MAGNESIUM SULFATE [Suspect]
     Dosage: 10 G, UNK
     Route: 042
  5. LABETALOL HCL [Concomitant]

REACTIONS (2)
  - DRUG INTERACTION [None]
  - NEUROMUSCULAR BLOCKADE [None]
